FAERS Safety Report 8483263-5 (Version None)
Quarter: 2012Q2

REPORT INFORMATION
  Report Type: 
  Country: None (occurrence: None)
  Receive Date: 20120625
  Receipt Date: 20120608
  Transmission Date: 20120825
  Serious: Yes (Hospitalization, Other)
  Sender: FDA-Public Use
  Company Number: CH-1192774

PATIENT
  Age: 57 Year
  Sex: Male

DRUGS (4)
  1. TOBRADEX [Suspect]
     Indication: POSTOPERATIVE CARE
     Dosage: (TID OPHTHALMIC)
     Route: 047
  2. OFLOXACIN [Suspect]
     Indication: INFECTION PROPHYLAXIS
     Dosage: (EVERY 2 HOURS OPHTHALMIC)
     Route: 047
  3. MITOMYCIN [Suspect]
     Indication: SURGERY
     Dosage: (0.2 MG/ML FOR 2 MIN INTRAOCULAR)
     Route: 031
  4. VITAMIN A [Suspect]
     Indication: POSTOPERATIVE CARE
     Dosage: (TID OPHTHALMIC)
     Route: 047

REACTIONS (7)
  - ULCERATIVE KERATITIS [None]
  - ANTERIOR CHAMBER FIBRIN [None]
  - ANTERIOR CHAMBER CELL [None]
  - CONJUNCTIVAL HYPERAEMIA [None]
  - AMNIOTIC MEMBRANE GRAFT [None]
  - POST PROCEDURAL COMPLICATION [None]
  - OCULAR HYPERAEMIA [None]
